FAERS Safety Report 7878763-2 (Version None)
Quarter: 2011Q4

REPORT INFORMATION
  Report Type: 
  Country: None (occurrence: None)
  Receive Date: 20111028
  Receipt Date: 20111013
  Transmission Date: 20120403
  Serious: Yes (Hospitalization, Other)
  Sender: FDA-Public Use
  Company Number: JPI-P-012125

PATIENT
  Age: 36 Year
  Sex: Female
  Weight: 98.8842 kg

DRUGS (29)
  1. DIVALPROEX SODIUM [Concomitant]
  2. SUPER B COMPLEX [Concomitant]
  3. ATENOLOL [Concomitant]
  4. VENLAFAXINE [Concomitant]
  5. METFORMIN HCL [Concomitant]
  6. ALPRAZOLAM [Concomitant]
  7. XYREM [Suspect]
     Indication: CATAPLEXY
     Dosage: SEE IMAGE: ORAL
     Route: 048
     Dates: start: 20101106
  8. XYREM [Suspect]
     Indication: CATAPLEXY
     Dosage: SEE IMAGE: ORAL
     Route: 048
     Dates: start: 20050908
  9. XYREM [Suspect]
     Indication: CATAPLEXY
     Dosage: SEE IMAGE: ORAL
     Route: 048
     Dates: end: 20111002
  10. XYREM [Suspect]
     Indication: CATAPLEXY
     Dosage: SEE IMAGE: ORAL
     Route: 048
     Dates: start: 20111003
  11. PROVIGIL [Suspect]
     Indication: NARCOLEPSY
     Dates: start: 20110721
  12. TOPIRAMATE [Concomitant]
  13. ESOMEPRAZOLE MAGNESIUM [Concomitant]
  14. SIMVASTATIN [Concomitant]
  15. LOVAZA [Concomitant]
  16. CITALOPRAM HYDROBROMIDE [Concomitant]
  17. LAMOTRIGINE [Concomitant]
  18. LISINOPRIL [Concomitant]
  19. AZELASTINE HCL [Concomitant]
  20. DEXTROAMPHETAMINE [Concomitant]
  21. QUETIAPINE FUMARATE [Concomitant]
  22. BUPROPION HCL [Concomitant]
  23. ASPIRIN [Concomitant]
  24. IRON [Concomitant]
  25. CALCIUM WITH VITAMIN D [Concomitant]
  26. IMIPRAMINE [Concomitant]
  27. XYREM [Suspect]
     Dosage: 7.5 GM (3.75 GM, 2 IN 1 D), ORAL
     Route: 048
     Dates: end: 20101105
  28. METHYLPHENIDATE [Concomitant]
  29. ASCORBIC ACID [Concomitant]

REACTIONS (14)
  - DEPRESSION [None]
  - SUICIDAL IDEATION [None]
  - INTRACRANIAL VENOUS SINUS THROMBOSIS [None]
  - THROMBOTIC STROKE [None]
  - DIABETES MELLITUS [None]
  - PARANOIA [None]
  - INSOMNIA [None]
  - BIPOLAR DISORDER [None]
  - SINUS DISORDER [None]
  - POLYCYSTIC OVARIES [None]
  - FATIGUE [None]
  - THERAPEUTIC RESPONSE DECREASED [None]
  - HEADACHE [None]
  - CONDITION AGGRAVATED [None]
